FAERS Safety Report 21740644 (Version 1)
Quarter: 2022Q4

REPORT INFORMATION
  Report Type: Spontaneous
  Country: US (occurrence: None)
  Receive Date: 20221216
  Receipt Date: 20221216
  Transmission Date: 20230113
  Serious: Yes (unspecified)
  Sender: FDA-Public Use
  Company Number: None

PATIENT
  Age: 71 Year
  Sex: Female
  Weight: 79.65 kg

DRUGS (1)
  1. SOTROVIMAB [Suspect]
     Active Substance: SOTROVIMAB
     Indication: COVID-19
     Dosage: OTHER FREQUENCY : ONCE;?
     Route: 041
     Dates: start: 20220317, end: 20220317

REACTIONS (5)
  - Infusion related reaction [None]
  - Headache [None]
  - Palpitations [None]
  - Dizziness postural [None]
  - Arthralgia [None]

NARRATIVE: CASE EVENT DATE: 20220317
